FAERS Safety Report 8743328 (Version 2)
Quarter: 2012Q4

REPORT INFORMATION
  Report Type: 
  Country: US (occurrence: US)
  Receive Date: 20120824
  Receipt Date: 20120911
  Transmission Date: 20130627
  Serious: Yes (Death)
  Sender: FDA-Public Use
  Company Number: US-BAXTER-2012BAX015150

PATIENT
  Sex: Male

DRUGS (1)
  1. DIANEAL LOW CALCIUM [Suspect]
     Indication: PERITONEAL DIALYSIS
     Route: 033
     Dates: end: 20120819

REACTIONS (6)
  - Weight decreased [Unknown]
  - Hypotension [Unknown]
  - Blood phosphorus abnormal [Unknown]
  - Feeling hot [Unknown]
  - Dyspnoea [Unknown]
  - Cardiac arrest [Fatal]
